FAERS Safety Report 7072547-3 (Version None)
Quarter: 2010Q4

REPORT INFORMATION
  Report Type: 
  Country: None (occurrence: None)
  Receive Date: 20101029
  Receipt Date: 20100315
  Transmission Date: 20110411
  Serious: No
  Sender: FDA-Public Use
  Company Number: A0843756A

PATIENT
  Age: 71 Year
  Sex: Male

DRUGS (7)
  1. ADVAIR DISKUS 100/50 [Suspect]
     Indication: ASTHMA
     Dosage: 500MCG TWICE PER DAY
     Route: 055
  2. ALLOPURINOL [Concomitant]
  3. ZANAFLEX [Concomitant]
  4. BACLOFEN [Concomitant]
  5. AMBIEN [Concomitant]
  6. BISACODYL [Concomitant]
  7. ALBUTEROL [Concomitant]

REACTIONS (2)
  - DRUG INEFFECTIVE [None]
  - PRODUCT QUALITY ISSUE [None]
